FAERS Safety Report 12101727 (Version 1)
Quarter: 2016Q1

REPORT INFORMATION
  Report Type: Report from Study
  Country: SE (occurrence: SE)
  Receive Date: 20160222
  Receipt Date: 20160222
  Transmission Date: 20160526
  Serious: Yes (Death, Other)
  Sender: FDA-Public Use
  Company Number: SE-CELGENE-150-C5013-12090429

PATIENT
  Age: 84 Year
  Sex: Female
  Weight: 57.2 kg

DRUGS (22)
  1. CC-5013 [Suspect]
     Active Substance: LENALIDOMIDE
     Indication: PLASMA CELL MYELOMA
     Route: 048
     Dates: start: 20100825
  2. XERODENT [Concomitant]
     Indication: DRY MOUTH
     Route: 065
     Dates: start: 20100901
  3. KALIUMKLORID [Concomitant]
     Indication: CONSTIPATION
     Route: 065
     Dates: start: 20101005
  4. DEXAMETHASONE. [Suspect]
     Active Substance: DEXAMETHASONE
     Indication: PLASMA CELL MYELOMA
     Dosage: 20 MILLIGRAM
     Route: 048
     Dates: start: 20100825
  5. NATRIUM PICOSULFATE [Concomitant]
     Indication: CONSTIPATION
     Route: 065
     Dates: start: 20101006
  6. NATRIUM PICOSULFATE [Concomitant]
     Route: 065
     Dates: start: 20120125
  7. CITODON [Concomitant]
     Active Substance: ACETAMINOPHEN\CODEINE PHOSPHATE
     Indication: PAIN IN EXTREMITY
     Route: 065
     Dates: start: 20110605
  8. DALTEPARIN SODIUM [Concomitant]
     Active Substance: DALTEPARIN SODIUM
     Indication: THROMBOSIS PROPHYLAXIS
     Route: 065
     Dates: start: 20100825
  9. PARACETAMOL [Concomitant]
     Active Substance: ACETAMINOPHEN
     Indication: HEADACHE
     Route: 065
     Dates: start: 1928
  10. NATRIUMCITRAT/NATRIUMLAURYLSULFAOACETAT [Concomitant]
     Indication: CONSTIPATION
     Route: 065
     Dates: start: 20100927
  11. CILAXORAL [Concomitant]
     Indication: CONSTIPATION PROPHYLAXIS
     Route: 065
     Dates: start: 20101006
  12. CILAXORAL [Concomitant]
     Indication: PROPHYLAXIS
  13. MOVICOL [Concomitant]
     Active Substance: POLYETHYLENE GLYCOL 3350\POTASSIUM CHLORIDE\SODIUM BICARBONATE\SODIUM CHLORIDE
     Indication: PROPHYLAXIS
     Route: 048
     Dates: start: 20101005
  14. FRAGMIN [Concomitant]
     Active Substance: DALTEPARIN SODIUM
     Indication: PROPHYLAXIS
     Route: 058
     Dates: start: 20100825
  15. LACTULOSE. [Concomitant]
     Active Substance: LACTULOSE
     Indication: CONSTIPATION
     Route: 065
     Dates: start: 20100927
  16. DEXAMETHASONE. [Suspect]
     Active Substance: DEXAMETHASONE
     Route: 048
     Dates: start: 20120803, end: 20120830
  17. MOVICOL [Concomitant]
     Active Substance: POLYETHYLENE GLYCOL 3350\POTASSIUM CHLORIDE\SODIUM BICARBONATE\SODIUM CHLORIDE
     Indication: CONSTIPATION PROPHYLAXIS
     Dosage: 100 MILLIGRAM
     Route: 048
     Dates: start: 20111227
  18. LEVAXIN [Concomitant]
     Active Substance: LEVOTHYROXINE SODIUM
     Indication: PROPHYLAXIS
     Route: 048
     Dates: start: 20101215
  19. PAMIDRONATO [Concomitant]
     Indication: PROPHYLAXIS
     Route: 041
     Dates: start: 20111021
  20. LACTULOSE. [Concomitant]
     Active Substance: LACTULOSE
     Route: 065
     Dates: start: 20120215
  21. CC-5013 [Suspect]
     Active Substance: LENALIDOMIDE
     Route: 048
     Dates: start: 20120803, end: 20120823
  22. OMEPRAZOLE. [Concomitant]
     Active Substance: OMEPRAZOLE
     Indication: PRODUCT USED FOR UNKNOWN INDICATION
     Dosage: 5000 IU (INTERNATIONAL UNIT)
     Route: 048
     Dates: start: 20120315

REACTIONS (3)
  - Adenocarcinoma of colon [Recovered/Resolved]
  - Meningioma [Not Recovered/Not Resolved]
  - Rectal adenoma [Recovered/Resolved]

NARRATIVE: CASE EVENT DATE: 20120831
